FAERS Safety Report 8936691 (Version 2)
Quarter: 2013Q1

REPORT INFORMATION
  Report Type: Spontaneous
  Country: FR (occurrence: FR)
  Receive Date: 20121130
  Receipt Date: 20130102
  Transmission Date: 20140127
  Serious: Yes (Hospitalization)
  Sender: FDA-Public Use
  Company Number: FR-ASTRAZENECA-2012SE89023

PATIENT
  Age: 83 Year
  Sex: Male

DRUGS (2)
  1. CRESTOR [Suspect]
     Dosage: UNKNOWN DOSE DAILY
     Route: 048
     Dates: end: 20121109
  2. ANANDRON [Suspect]
     Dosage: UNKNOWN DOSE DAILY
     Route: 048
     Dates: start: 20120930, end: 20121109

REACTIONS (7)
  - Interstitial lung disease [Recovering/Resolving]
  - Pneumonia [Unknown]
  - Dyspnoea [Recovering/Resolving]
  - Hypoxia [Recovering/Resolving]
  - Pyrexia [Unknown]
  - Cough [Unknown]
  - Abdominal pain upper [Unknown]
